FAERS Safety Report 5797237-6 (Version None)
Quarter: 2008Q3

REPORT INFORMATION
  Report Type: 
  Country: None (occurrence: None)
  Receive Date: 20080701
  Receipt Date: 20080624
  Transmission Date: 20090109
  Serious: Yes (Life-Threatening)
  Sender: FDA-Public Use
  Company Number: FR-PFIZER INC-2008036354

PATIENT
  Sex: Male

DRUGS (13)
  1. CAMPTO [Suspect]
     Indication: EWING'S SARCOMA
     Dosage: DAILY DOSE:17MG
     Route: 042
     Dates: start: 20080131, end: 20080212
  2. ATROPINE [Suspect]
     Indication: PROPHYLAXIS
     Dosage: DAILY DOSE:.25MG
     Route: 058
     Dates: start: 20080131, end: 20080212
  3. LENOGRASTIM [Suspect]
     Indication: NEUTROPENIA
     Dosage: DAILY DOSE:34MG
     Route: 042
     Dates: start: 20080212, end: 20080212
  4. TEMOZOLOMIDE [Concomitant]
     Route: 042
  5. ONDANSETRON [Concomitant]
     Route: 042
  6. CIPROFLOXACIN [Concomitant]
  7. MORPHINE [Concomitant]
  8. MORPHINE [Concomitant]
  9. ALL OTHER THERAPEUTIC PRODUCTS [Concomitant]
     Route: 042
  10. ALLOPURINOL [Concomitant]
  11. ESOMEPRAZOLE MAGNESIUM [Concomitant]
  12. BROMAZEPAM [Concomitant]
  13. ZOLPIDEM TARTRATE [Concomitant]

REACTIONS (3)
  - MALAISE [None]
  - SHOCK [None]
  - TACHYCARDIA [None]
